FAERS Safety Report 6223232-9 (Version None)
Quarter: 2009Q2

REPORT INFORMATION
  Report Type: 
  Country: None (occurrence: None)
  Receive Date: 20090609
  Receipt Date: 20090528
  Transmission Date: 20091009
  Serious: Yes (Other)
  Sender: FDA-Public Use
  Company Number: 2009003693

PATIENT
  Age: 38 Year
  Sex: Female

DRUGS (6)
  1. NAPROXEN [Suspect]
  2. FEVERALL [Suspect]
  3. LANSOPRAZOLE [Concomitant]
  4. ARAVA [Concomitant]
  5. CODEINE [Concomitant]
  6. AMITRIPTYLINE [Concomitant]

REACTIONS (4)
  - ABORTION SPONTANEOUS [None]
  - DRUG EXPOSURE DURING PREGNANCY [None]
  - DRUG TOLERANCE DECREASED [None]
  - PREGNANCY [None]
